FAERS Safety Report 12690245 (Version 1)
Quarter: 2016Q3

REPORT INFORMATION
  Report Type: Spontaneous
  Country: BG (occurrence: BG)
  Receive Date: 20160826
  Receipt Date: 20160826
  Transmission Date: 20161109
  Serious: Yes (Hospitalization)
  Sender: FDA-Public Use
  Company Number: BG-ABBVIE-16K-022-1707875-00

PATIENT
  Age: 43 Year
  Sex: Female

DRUGS (3)
  1. TOP FOLAT [Concomitant]
     Indication: RHEUMATOID ARTHRITIS
     Dosage: 5 DAYS X 4 TABLETS PER WEEK
     Dates: start: 20070112
  2. HUMIRA [Suspect]
     Active Substance: ADALIMUMAB
     Indication: RHEUMATOID ARTHRITIS
     Route: 058
     Dates: start: 20150108, end: 20160415
  3. TOP FOLAT [Concomitant]
     Indication: RHEUMATOID ARTHRITIS
     Dates: start: 20070112

REACTIONS (8)
  - Myalgia [Recovered/Resolved]
  - Lupus-like syndrome [Recovered/Resolved]
  - Antinuclear antibody positive [Recovered/Resolved]
  - Rash [Recovered/Resolved]
  - Fatigue [Recovered/Resolved]
  - Pleurisy [Recovered/Resolved]
  - Arthritis [Recovered/Resolved]
  - DNA antibody positive [Recovered/Resolved]

NARRATIVE: CASE EVENT DATE: 20160315
